FAERS Safety Report 8913485 (Version 2)
Quarter: 2013Q1

REPORT INFORMATION
  Report Type: Spontaneous
  Country: US (occurrence: None)
  Receive Date: 20121114
  Receipt Date: 20121226
  Transmission Date: 20140127
  Serious: Yes (Hospitalization)
  Sender: FDA-Public Use
  Company Number: ACO_26979_2011

PATIENT
  Age: 69 Year
  Sex: Female
  Weight: 57.1 kg

DRUGS (3)
  1. AMPYRA (DALFAMPRIDINE) TABLET, 10MG [Suspect]
     Route: 048
     Dates: start: 2011, end: 2011
  2. COPAXONE (GLATIRAMER ACETATE) [Concomitant]
  3. CALCIUM (CALCIUM) [Concomitant]

REACTIONS (7)
  - Bronchitis [None]
  - Sinusitis [None]
  - Allergy to animal [None]
  - Hypomagnesaemia [None]
  - Alopecia [None]
  - Nail ridging [None]
  - Inappropriate schedule of drug administration [None]
